FAERS Safety Report 14331584 (Version 2)
Quarter: 2018Q1

REPORT INFORMATION
  Report Type: Spontaneous
  Country: US (occurrence: US)
  Receive Date: 20171228
  Receipt Date: 20180109
  Transmission Date: 20180509
  Serious: Yes (Other)
  Sender: FDA-Public Use
  Company Number: US-BIOGEN-2017BI00500346

PATIENT
  Age: 32 Year
  Sex: Female

DRUGS (2)
  1. TECFIDERA [Suspect]
     Active Substance: DIMETHYL FUMARATE
     Indication: MULTIPLE SCLEROSIS
     Dosage: STARTING DOSE
     Route: 048
     Dates: start: 201502
  2. TECFIDERA [Suspect]
     Active Substance: DIMETHYL FUMARATE
     Dosage: MAINTENANCE DOSE
     Route: 048
     Dates: end: 201701

REACTIONS (3)
  - Haemorrhage [Recovered/Resolved]
  - Maternal exposure during pregnancy [Recovered/Resolved]
  - Prolonged labour [Recovered/Resolved]

NARRATIVE: CASE EVENT DATE: 20171115
